FAERS Safety Report 8601811-9 (Version None)
Quarter: 2012Q3

REPORT INFORMATION
  Report Type: 
  Country: None (occurrence: None)
  Receive Date: 20120817
  Receipt Date: 20120420
  Transmission Date: 20120928
  Serious: Yes (Life-Threatening, Hospitalization)
  Sender: FDA-Public Use
  Company Number: US-BRISTOL-MYERS SQUIBB COMPANY-16539983

PATIENT
  Age: 48 Year
  Sex: Male

DRUGS (1)
  1. SPRYCEL [Suspect]
     Indication: CHRONIC MYELOID LEUKAEMIA
     Dosage: DOSE REDUCED: 100MG QD. INTERRUPTED 05APR12
     Dates: start: 20111101

REACTIONS (3)
  - TRANSAMINASES INCREASED [None]
  - RENAL FAILURE [None]
  - SEPTIC SHOCK [None]
